FAERS Safety Report 16320211 (Version 5)
Quarter: 2021Q3

REPORT INFORMATION
  Report Type: Spontaneous
  Country: US (occurrence: US)
  Receive Date: 20190516
  Receipt Date: 20210705
  Transmission Date: 20211014
  Serious: Yes (Hospitalization, Other)
  Sender: FDA-Public Use
  Company Number: US-PFIZER INC-2019208886

PATIENT
  Age: 71 Year
  Sex: Female
  Weight: 44 kg

DRUGS (2)
  1. XELJANZ XR [Suspect]
     Active Substance: TOFACITINIB CITRATE
     Indication: SCLERODERMA
  2. XELJANZ XR [Suspect]
     Active Substance: TOFACITINIB CITRATE
     Indication: RHEUMATOID ARTHRITIS
     Dosage: 11 MG, 1X/DAY
     Route: 048

REACTIONS (12)
  - Pneumonia [Recovering/Resolving]
  - Pneumothorax [Unknown]
  - Haemoptysis [Unknown]
  - Treatment noncompliance [Unknown]
  - Hand deformity [Unknown]
  - Blood glucose decreased [Recovered/Resolved]
  - Rheumatoid lung [Unknown]
  - Chronic obstructive pulmonary disease [Recovering/Resolving]
  - Memory impairment [Unknown]
  - Body height decreased [Unknown]
  - Condition aggravated [Unknown]
  - Cough [Recovering/Resolving]

NARRATIVE: CASE EVENT DATE: 202003
